FAERS Safety Report 23611507 (Version 2)
Quarter: 2024Q2

REPORT INFORMATION
  Report Type: Report from Study
  Country: US (occurrence: US)
  Receive Date: 20240308
  Receipt Date: 20240501
  Transmission Date: 20240715
  Serious: No
  Sender: FDA-Public Use
  Company Number: US-AstraZeneca-CH-00578027A

PATIENT
  Age: 67 Year
  Sex: Female

DRUGS (1)
  1. ULTOMIRIS [Suspect]
     Active Substance: RAVULIZUMAB-CWVZ
     Indication: Myasthenia gravis
     Dosage: UNK
     Route: 042

REACTIONS (4)
  - Illness [Recovering/Resolving]
  - Cardiac murmur [Recovering/Resolving]
  - Exostosis [Recovering/Resolving]
  - Insurance issue [Unknown]

NARRATIVE: CASE EVENT DATE: 20240101
